FAERS Safety Report 8208460-5 (Version None)
Quarter: 2012Q1

REPORT INFORMATION
  Report Type: 
  Country: None (occurrence: None)
  Receive Date: 20120314
  Receipt Date: 20120309
  Transmission Date: 20120608
  Serious: Yes (Other)
  Sender: FDA-Public Use
  Company Number: BR-PFIZER INC-2012064473

PATIENT
  Age: 65 Year
  Sex: Female

DRUGS (3)
  1. VALSARTAN [Concomitant]
     Indication: BLOOD PRESSURE INCREASED
     Dosage: UNSPECIFIED DOSAGE ONCE DAILY
     Dates: start: 20030101, end: 20120101
  2. METFORMIN HYDROCHLORIDE [Concomitant]
     Indication: DIABETES MELLITUS
     Dosage: UNSPECIFIED DOSAGE 3X/DAY
     Dates: start: 20030101, end: 20120101
  3. LYRICA [Suspect]
     Indication: PAIN
     Dosage: UNSPECIFIED DOSAGE, ONCE DAILY
     Route: 048
     Dates: start: 20110309

REACTIONS (2)
  - SPINAL FRACTURE [None]
  - FALL [None]
